FAERS Safety Report 5425575-5 (Version None)
Quarter: 2007Q3

REPORT INFORMATION
  Report Type: 
  Country: None (occurrence: None)
  Receive Date: 20070824
  Receipt Date: 20070814
  Transmission Date: 20080115
  Serious: Yes (Hospitalization)
  Sender: FDA-Public Use
  Company Number: FR-PFIZER INC-2007065916

PATIENT
  Age: 69 Year
  Sex: Male

DRUGS (4)
  1. ATARAX [Suspect]
     Indication: ANXIETY
     Dosage: DAILY DOSE:100MG
     Route: 048
     Dates: start: 20070505, end: 20070605
  2. DISULFIRAM [Suspect]
     Indication: ALCOHOLISM
     Dosage: DAILY DOSE:500MG
     Route: 048
     Dates: start: 20070505, end: 20070605
  3. ACAMPROSATE [Suspect]
     Indication: ALCOHOLISM
     Dosage: TEXT:6 DF
     Route: 048
     Dates: start: 20070505, end: 20070605
  4. VALSARTAN AND HYDROCHLOROTHIAZIDE [Concomitant]
     Indication: HYPERTENSION
     Route: 048

REACTIONS (5)
  - DEPRESSED LEVEL OF CONSCIOUSNESS [None]
  - DISORIENTATION [None]
  - DISTURBANCE IN ATTENTION [None]
  - MALAISE [None]
  - REPETITIVE SPEECH [None]
